FAERS Safety Report 9965420 (Version 1)
Quarter: 2014Q1

REPORT INFORMATION
  Report Type: Report from Study
  Country: US (occurrence: US)
  Receive Date: 20140305
  Receipt Date: 20140305
  Transmission Date: 20141002
  Serious: No
  Sender: FDA-Public Use
  Company Number: US-ABBVIE-13P-163-1126501-00

PATIENT
  Age: 23 Year
  Sex: Female

DRUGS (6)
  1. HUMIRA [Suspect]
     Indication: CROHN^S DISEASE
     Dates: start: 20130531
  2. MULTIVITAMIN [Concomitant]
     Indication: PRODUCT USED FOR UNKNOWN INDICATION
     Dosage: DAILY
  3. IRON [Concomitant]
     Indication: MINERAL SUPPLEMENTATION
     Dosage: DAILY
  4. CALCIUM VITE [Concomitant]
     Indication: MINERAL SUPPLEMENTATION
     Dosage: DAILY
  5. JOLESSA [Concomitant]
     Indication: CONTRACEPTION
     Dosage: PILL
  6. VALACYCLOVIR [Concomitant]
     Indication: PRODUCT USED FOR UNKNOWN INDICATION
     Dosage: DAILY

REACTIONS (2)
  - Injection site pruritus [Not Recovered/Not Resolved]
  - Injection site erythema [Not Recovered/Not Resolved]
